FAERS Safety Report 10958703 (Version 1)
Quarter: 2015Q1

REPORT INFORMATION
  Report Type: Spontaneous
  Country: US (occurrence: None)
  Receive Date: 20150226
  Receipt Date: 20150226
  Transmission Date: 20150721
  Serious: Yes (Hospitalization)
  Sender: FDA-Public Use
  Company Number: TPA2009A01262

PATIENT
  Age: 3 Month
  Sex: Male

DRUGS (1)
  1. PREVACID [Suspect]
     Active Substance: LANSOPRAZOLE
     Indication: GASTROOESOPHAGEAL REFLUX DISEASE
     Dosage: 1 IN 1 D
     Route: 048
     Dates: start: 200811, end: 20090421

REACTIONS (2)
  - Gastrooesophageal reflux disease [None]
  - Respiratory distress [None]

NARRATIVE: CASE EVENT DATE: 20090317
